FAERS Safety Report 18511340 (Version 1)
Quarter: 2020Q4

REPORT INFORMATION
  Report Type: Spontaneous
  Country: US (occurrence: US)
  Receive Date: 20201117
  Receipt Date: 20201117
  Transmission Date: 20210114
  Serious: Yes (Other)
  Sender: FDA-Public Use
  Company Number: None

PATIENT
  Age: 28 Year
  Sex: Female
  Weight: 49.5 kg

DRUGS (7)
  1. ALBUTEROL. [Concomitant]
     Active Substance: ALBUTEROL
  2. CHAMOMILE TEA [Concomitant]
     Active Substance: MATRICARIA RECUTITA
  3. SYMDEKO [Concomitant]
     Active Substance: IVACAFTOR\TEZACAFTOR
  4. CAYSTON [Concomitant]
     Active Substance: AZTREONAM
  5. PULMOZYME [Concomitant]
     Active Substance: DORNASE ALFA
  6. CREON [Concomitant]
     Active Substance: PANCRELIPASE AMYLASE\PANCRELIPASE LIPASE\PANCRELIPASE PROTEASE
  7. TRIKAFTA [Suspect]
     Active Substance: ELEXACAFTOR\IVACAFTOR\TEZACAFTOR
     Indication: CYSTIC FIBROSIS
     Dosage: ?          QUANTITY:3 TABLET(S);?
     Route: 048
     Dates: start: 20200117, end: 20200206

REACTIONS (4)
  - Anger [None]
  - Depression [None]
  - Suicidal ideation [None]
  - Anxiety [None]

NARRATIVE: CASE EVENT DATE: 20200203
